FAERS Safety Report 22597095 (Version 18)
Quarter: 2025Q3

REPORT INFORMATION
  Report Type: Report from Study
  Country: US (occurrence: US)
  Receive Date: 20230613
  Receipt Date: 20250820
  Transmission Date: 20251020
  Serious: Yes (Other)
  Sender: TAKEDA
  Company Number: US-TAKEDA-2022TUS017370

PATIENT
  Age: 68 Year
  Sex: Female
  Weight: 73 kg

DRUGS (26)
  1. HUMAN IMMUNOGLOBULIN G [Suspect]
     Active Substance: HUMAN IMMUNOGLOBULIN G
     Indication: Immunodeficiency common variable
     Dosage: 200 MILLIGRAM/KILOGRAM, Q2WEEKS
  2. HUMAN IMMUNOGLOBULIN G [Suspect]
     Active Substance: HUMAN IMMUNOGLOBULIN G
     Dosage: 200 MILLIGRAM, Q2WEEKS
  3. HUMAN IMMUNOGLOBULIN G [Suspect]
     Active Substance: HUMAN IMMUNOGLOBULIN G
     Dosage: 15 GRAM, Q2WEEKS
  4. HUMAN IMMUNOGLOBULIN G [Suspect]
     Active Substance: HUMAN IMMUNOGLOBULIN G
     Dosage: 7 GRAM, 1/WEEK
  5. HUMAN IMMUNOGLOBULIN G [Suspect]
     Active Substance: HUMAN IMMUNOGLOBULIN G
     Dosage: 15 GRAM, Q2WEEKS
  6. HUMAN IMMUNOGLOBULIN G [Suspect]
     Active Substance: HUMAN IMMUNOGLOBULIN G
     Dosage: 12 GRAM, Q2WEEKS
  7. ROSUVASTATIN [Suspect]
     Active Substance: ROSUVASTATIN
     Indication: Product used for unknown indication
  8. ATORVASTATIN [Suspect]
     Active Substance: ATORVASTATIN
     Indication: Product used for unknown indication
  9. ACETAMINOPHEN [Concomitant]
     Active Substance: ACETAMINOPHEN
  10. ZYRTEC [Concomitant]
     Active Substance: CETIRIZINE HYDROCHLORIDE
  11. METHYLPREDNISOLONE ACETATE [Concomitant]
     Active Substance: METHYLPREDNISOLONE ACETATE
  12. FOLTX [Concomitant]
     Active Substance: CYANOCOBALAMIN CO-57\FOLIC ACID\PYRIDOXINE HYDROCHLORIDE
  13. AZELASTINE HYDROCHLORIDE [Concomitant]
     Active Substance: AZELASTINE HYDROCHLORIDE
  14. BACLOFEN [Concomitant]
     Active Substance: BACLOFEN
  15. HYDROXYCHLOROQUINE SULFATE [Concomitant]
     Active Substance: HYDROXYCHLOROQUINE SULFATE
  16. FLUTICASONE PROPIONATE [Concomitant]
     Active Substance: FLUTICASONE PROPIONATE
  17. LEVOTHYROXINE SODIUM [Concomitant]
     Active Substance: LEVOTHYROXINE SODIUM
  18. VITAMIN D3 [Concomitant]
     Active Substance: CHOLECALCIFEROL
  19. DIPHENHYDRAMINE HYDROCHLORIDE [Concomitant]
     Active Substance: DIPHENHYDRAMINE HYDROCHLORIDE
  20. Lmx [Concomitant]
  21. ESTRACE [Concomitant]
     Active Substance: ESTRADIOL
  22. AZITHROMYCIN [Concomitant]
     Active Substance: AZITHROMYCIN
  23. BOTOX [Concomitant]
     Active Substance: ONABOTULINUMTOXINA
  24. EPINEPHRINE [Concomitant]
     Active Substance: EPINEPHRINE
  25. EXCEDRIN MIGRAINE [Concomitant]
     Active Substance: ACETAMINOPHEN\ASPIRIN\CAFFEINE
  26. METFORMIN HYDROCHLORIDE [Concomitant]
     Active Substance: METFORMIN HYDROCHLORIDE

REACTIONS (30)
  - Rheumatoid arthritis [Unknown]
  - Weight decreased [Unknown]
  - Inflammation [Not Recovered/Not Resolved]
  - Gastrooesophageal reflux disease [Unknown]
  - Dermatitis contact [Unknown]
  - COVID-19 [Unknown]
  - Drug hypersensitivity [Unknown]
  - Ear infection [Unknown]
  - Paranasal sinus inflammation [Unknown]
  - Skin reaction [Unknown]
  - Chronic sinusitis [Not Recovered/Not Resolved]
  - Sinus congestion [Recovered/Resolved]
  - Seasonal allergy [Recovered/Resolved]
  - Multiple allergies [Unknown]
  - Inappropriate schedule of product administration [Unknown]
  - Blood cholesterol abnormal [Unknown]
  - Sinusitis [Unknown]
  - Acne [Unknown]
  - Abdominal discomfort [Unknown]
  - Infusion site warmth [Unknown]
  - Infusion site urticaria [Unknown]
  - Infusion site bruising [Unknown]
  - Rash [Unknown]
  - Infusion site erythema [Unknown]
  - Infusion site swelling [Unknown]
  - Hypersensitivity [Unknown]
  - Migraine [Recovered/Resolved]
  - Diarrhoea [Unknown]
  - Urticaria [Unknown]
  - Nausea [Unknown]

NARRATIVE: CASE EVENT DATE: 20221124
